FAERS Safety Report 4677652-4 (Version None)
Quarter: 2005Q2

REPORT INFORMATION
  Report Type: 
  Country: None (occurrence: None)
  Receive Date: 20050527
  Receipt Date: 20050527
  Transmission Date: 20051028
  Serious: No
  Sender: FDA-Public Use
  Company Number: None

PATIENT
  Sex: Male
  Weight: 53 kg

DRUGS (2)
  1. PACLITAXEL [Suspect]
     Indication: NON-SMALL CELL LUNG CANCER
     Dosage: 200 MG/M2 IV OVER 3HR ON DAY 1, EVERY 21 DAYS X 6 CYCLES
     Route: 042
     Dates: start: 20031103
  2. CARBOPLATIN [Suspect]
     Dosage: AUC = 6 IV OVER 15-30 MIN ON DAY 1, EVERY 21 DAYS X 6 CYCLES
     Route: 042

REACTIONS (7)
  - BRONCHOSPASM [None]
  - CLONUS [None]
  - DIZZINESS [None]
  - DYSPNOEA [None]
  - INFUSION RELATED REACTION [None]
  - OXYGEN SATURATION DECREASED [None]
  - RESPIRATORY DISORDER [None]
